FAERS Safety Report 7009198-2 (Version None)
Quarter: 2010Q3

REPORT INFORMATION
  Report Type: 
  Country: None (occurrence: None)
  Receive Date: 20100921
  Receipt Date: 20100906
  Transmission Date: 20110219
  Serious: Yes (Other)
  Sender: FDA-Public Use
  Company Number: AUR-APL-2010-02223

PATIENT
  Age: 52 Year
  Sex: Male

DRUGS (14)
  1. RIBAVIRIN [Suspect]
     Indication: HEPATITIS C
     Dosage: 1000MG, DAILY
  2. PEGINTERFERON ALFA-2A [Suspect]
     Indication: HEPATITIS C
     Dosage: 180 ?G, Q WEEK
  3. FILGRASTIM [Concomitant]
  4. ALBUTEROL [Concomitant]
  5. ELETRIPTAN HYDROBROMIDE [Concomitant]
  6. HYDROMORPHONE HCL [Concomitant]
  7. FLUTICASONE PROPIONATE [Concomitant]
  8. SALMETEROL [Concomitant]
  9. BUPROPION [Concomitant]
  10. CLONAZEPAM [Concomitant]
  11. OMEPRAZOLE [Concomitant]
  12. ZOLPIDEM [Concomitant]
  13. PROCHLORPERAZINE [Concomitant]
  14. TIZANIDINE HCL [Concomitant]

REACTIONS (6)
  - BLINDNESS UNILATERAL [None]
  - HYPOAESTHESIA [None]
  - OPTIC ATROPHY [None]
  - PANCYTOPENIA [None]
  - PAPILLOEDEMA [None]
  - PARAESTHESIA [None]
